FAERS Safety Report 4862362-0 (Version None)
Quarter: 2005Q4

REPORT INFORMATION
  Report Type: 
  Country: None (occurrence: None)
  Receive Date: 20051221
  Receipt Date: 20030929
  Transmission Date: 20060501
  Serious: Yes (Other)
  Sender: FDA-Public Use
  Company Number: CA-BRISTOL-MYERS SQUIBB COMPANY-12397899

PATIENT
  Age: 83 Year
  Sex: Male

DRUGS (7)
  1. TEQUIN [Suspect]
     Indication: BRONCHITIS
     Route: 048
     Dates: start: 20030923, end: 20030925
  2. ASPIRIN [Concomitant]
  3. DILTIAZEM HCL [Concomitant]
  4. HYDROCHLOROTHIAZIDE [Concomitant]
  5. NITROGLYCERIN [Concomitant]
  6. QUETIAPINE FUMARATE [Concomitant]
  7. SINEMET CR [Concomitant]
     Dosage: 200/50

REACTIONS (1)
  - HYPERGLYCAEMIA [None]
